FAERS Safety Report 6582468-8 (Version None)
Quarter: 2010Q1

REPORT INFORMATION
  Report Type: 
  Country: None (occurrence: None)
  Receive Date: 20100216
  Receipt Date: 20100204
  Transmission Date: 20100710
  Serious: Yes (Other)
  Sender: FDA-Public Use
  Company Number: PHHY2008JP06135

PATIENT
  Sex: Male

DRUGS (9)
  1. ZOLEDRONATE T29581+ [Suspect]
     Indication: MULTIPLE MYELOMA
     Dosage: 4 MG EVERY 4 WEEKS
     Route: 042
     Dates: start: 20070109, end: 20080219
  2. ZOLEDRONATE T29581+ [Suspect]
     Indication: BONE LESION
  3. BENET [Suspect]
     Dosage: 2.5 MG/DAILY
     Route: 048
     Dates: start: 20040520, end: 20070108
  4. PREDONINE [Concomitant]
     Dosage: 45 MG, UNK
     Route: 048
     Dates: start: 20070109, end: 20090703
  5. MAGMITT [Concomitant]
     Dosage: 1000 MG, UNK
     Route: 048
     Dates: start: 20070109, end: 20090703
  6. ALKERAN [Concomitant]
     Dosage: 10 MG, UNK
     Route: 048
     Dates: start: 20070109, end: 20090703
  7. PRIMPERAN TAB [Concomitant]
     Dosage: 15 MG, UNK
     Route: 048
     Dates: start: 20070109, end: 20090703
  8. GASTER D [Concomitant]
     Dosage: 40 MG, UNK
     Route: 048
     Dates: start: 20070109, end: 20090703
  9. ATELEC [Concomitant]
     Dosage: 5 MG, UNK
     Route: 048
     Dates: start: 20031111, end: 20070213

REACTIONS (7)
  - BONE OPERATION [None]
  - GINGIVAL ERYTHEMA [None]
  - GINGIVAL INFECTION [None]
  - GINGIVAL SWELLING [None]
  - OSTEONECROSIS [None]
  - SEQUESTRECTOMY [None]
  - TOOTH EXTRACTION [None]
